FAERS Safety Report 25747317 (Version 1)
Quarter: 2025Q3

REPORT INFORMATION
  Report Type: Spontaneous
  Country: US (occurrence: US)
  Receive Date: 20250901
  Receipt Date: 20250901
  Transmission Date: 20251020
  Serious: No
  Sender: DR REDDYS
  Company Number: US-DRL-USA-USA/2025/08/012533

PATIENT
  Sex: Female

DRUGS (2)
  1. CLONIDINE TRANSDERMAL SYSTEM USP, 0.1 MG/DAY [Suspect]
     Active Substance: CLONIDINE
     Indication: Blood pressure abnormal
     Dosage: NDC: 7590702348 /SERIAL: ANHOC1C4WM50 (FOR THE OLD BOX)
     Route: 062
     Dates: start: 202406
  2. CLONIDINE TRANSDERMAL SYSTEM [Suspect]
     Active Substance: CLONIDINE
     Dosage: NDC: 7590702348 /SERIAL NUMBER: 9A29193AWZRL (FOR THE NEW BOX)
     Route: 062
     Dates: start: 20250801

REACTIONS (3)
  - Dermatitis contact [Not Recovered/Not Resolved]
  - Erythema [Not Recovered/Not Resolved]
  - Blister [Not Recovered/Not Resolved]
